FAERS Safety Report 23066223 (Version 2)
Quarter: 2023Q4

REPORT INFORMATION
  Report Type: Spontaneous
  Country: IT (occurrence: IT)
  Receive Date: 20231015
  Receipt Date: 20231102
  Transmission Date: 20240110
  Serious: Yes (Life-Threatening, Hospitalization, Other)
  Sender: FDA-Public Use
  Company Number: IT-MINISAL02-948026

PATIENT
  Age: 58 Year
  Sex: Female
  Weight: 58 kg

DRUGS (5)
  1. FUROSEMIDE [Suspect]
     Active Substance: FUROSEMIDE
     Indication: Cardiac failure
     Dosage: 20 MILLIGRAM (FUROSEMIDE 20 MG X 3 DIE)
     Route: 065
     Dates: start: 20231002, end: 20231003
  2. LEVETIRACETAM [Suspect]
     Active Substance: LEVETIRACETAM
     Indication: Epilepsy
     Dosage: 500 MILLIGRAM
     Route: 040
     Dates: start: 20231002, end: 20231004
  3. BISACODYL [Suspect]
     Active Substance: BISACODYL
     Indication: Constipation
     Dosage: 5 MILLIGRAM, ONCE A DAY (BISACODILE 5 MG PER OS)
     Route: 065
     Dates: start: 20231002, end: 20231003
  4. CEFAZOLIN [Suspect]
     Active Substance: CEFAZOLIN
     Indication: Blood culture positive
     Dosage: 2 GRAM (CEFAZOLINA 2 GRAMMA EV X 3 DIE)
     Route: 065
     Dates: start: 20231002, end: 20231003
  5. TRAMADOL [Suspect]
     Active Substance: TRAMADOL\TRAMADOL HYDROCHLORIDE
     Indication: Postoperative analgesia
     Dosage: 100 MILLIGRAM, 3 TIMES A DAY (TRANADOLO 100 MG X 3 PER VIA ENDOVENOSA)
     Route: 042
     Dates: start: 20230929, end: 20231003

REACTIONS (2)
  - Torsade de pointes [Recovered/Resolved]
  - Ventricular fibrillation [Recovered/Resolved]

NARRATIVE: CASE EVENT DATE: 20231003
